FAERS Safety Report 9892074 (Version 2)
Quarter: 2014Q2

REPORT INFORMATION
  Report Type: Spontaneous
  Country: FR (occurrence: FR)
  Receive Date: 20140212
  Receipt Date: 20140627
  Transmission Date: 20141212
  Serious: Yes (Hospitalization)
  Sender: FDA-Public Use
  Company Number: FR-TEVA-460618ISR

PATIENT
  Age: 78 Year
  Sex: Female

DRUGS (11)
  1. AZILECT 1 MG [Suspect]
     Route: 048
     Dates: start: 201309, end: 20140210
  2. ROPINIROLE BASE [Concomitant]
     Dosage: 2 MILLIGRAM DAILY;
     Route: 048
     Dates: start: 201310
  3. TORENTAL [Concomitant]
     Route: 048
     Dates: start: 201309, end: 20140107
  4. CARBIDOPA [Concomitant]
     Dosage: LONG-TERM
     Route: 048
  5. LEVODOPA [Concomitant]
     Dosage: LONG-TERM
     Route: 048
  6. DOMPERIDONE [Concomitant]
     Dosage: LONG-TERM
     Route: 048
     Dates: end: 20140106
  7. FLECAINE LP 150MG [Concomitant]
  8. COVERSYL [Concomitant]
  9. PRAVASTATINE 20MG [Concomitant]
  10. KARDEGIC [Concomitant]
  11. LANSOPRAZOLE 30MG [Concomitant]

REACTIONS (1)
  - Peripheral ischaemia [Recovered/Resolved]
